FAERS Safety Report 26218980 (Version 1)
Quarter: 2025Q4

REPORT INFORMATION
  Report Type: Spontaneous
  Country: EU (occurrence: EU)
  Receive Date: 20251231
  Receipt Date: 20251231
  Transmission Date: 20260118
  Serious: Yes (Other)
  Sender: MYLAN
  Company Number: EU-MYLANLABS-2025M1111229

PATIENT
  Age: 43 Year
  Sex: Female

DRUGS (60)
  1. CYCLOSPORINE [Suspect]
     Active Substance: CYCLOSPORINE
     Indication: Philadelphia positive acute lymphocytic leukaemia
     Dosage: UNK (RECEIVED UNDER INDUCTION PHASE OF LAL-PH-2008 PROTOCOL)
  2. CYCLOSPORINE [Suspect]
     Active Substance: CYCLOSPORINE
     Indication: Prophylaxis against graft versus host disease
     Dosage: UNK (RECEIVED UNDER INDUCTION PHASE OF LAL-PH-2008 PROTOCOL)
  3. CYCLOSPORINE [Suspect]
     Active Substance: CYCLOSPORINE
     Dosage: UNK (RECEIVED UNDER INDUCTION PHASE OF LAL-PH-2008 PROTOCOL)
     Route: 065
  4. CYCLOSPORINE [Suspect]
     Active Substance: CYCLOSPORINE
     Dosage: UNK (RECEIVED UNDER INDUCTION PHASE OF LAL-PH-2008 PROTOCOL)
     Route: 065
  5. CYCLOSPORINE [Suspect]
     Active Substance: CYCLOSPORINE
     Dosage: UNK (RECEIVED AS SHORT COURSE REGIMEN)
  6. CYCLOSPORINE [Suspect]
     Active Substance: CYCLOSPORINE
     Dosage: UNK (RECEIVED AS SHORT COURSE REGIMEN)
  7. CYCLOSPORINE [Suspect]
     Active Substance: CYCLOSPORINE
     Dosage: UNK (RECEIVED AS SHORT COURSE REGIMEN)
     Route: 065
  8. CYCLOSPORINE [Suspect]
     Active Substance: CYCLOSPORINE
     Dosage: UNK (RECEIVED AS SHORT COURSE REGIMEN)
     Route: 065
  9. TACROLIMUS [Suspect]
     Active Substance: TACROLIMUS
     Indication: Philadelphia positive acute lymphocytic leukaemia
     Dosage: UNK (RECEIVED UNDER INDUCTION PHASE OF LAL-PH-2008 PROTOCOL)
  10. TACROLIMUS [Suspect]
     Active Substance: TACROLIMUS
     Dosage: UNK (RECEIVED UNDER INDUCTION PHASE OF LAL-PH-2008 PROTOCOL)
     Route: 065
  11. TACROLIMUS [Suspect]
     Active Substance: TACROLIMUS
     Dosage: UNK (RECEIVED UNDER INDUCTION PHASE OF LAL-PH-2008 PROTOCOL)
     Route: 065
  12. TACROLIMUS [Suspect]
     Active Substance: TACROLIMUS
     Dosage: UNK (RECEIVED UNDER INDUCTION PHASE OF LAL-PH-2008 PROTOCOL)
  13. METHOTREXATE [Suspect]
     Active Substance: METHOTREXATE
     Indication: Philadelphia positive acute lymphocytic leukaemia
     Dosage: UNK (RECEIVED UNDER INDUCTION PHASE OF LAL-PH-2008 PROTOCOL)
  14. METHOTREXATE [Suspect]
     Active Substance: METHOTREXATE
     Indication: Prophylaxis against graft versus host disease
     Dosage: UNK (RECEIVED UNDER INDUCTION PHASE OF LAL-PH-2008 PROTOCOL)
  15. METHOTREXATE [Suspect]
     Active Substance: METHOTREXATE
     Dosage: UNK (RECEIVED UNDER INDUCTION PHASE OF LAL-PH-2008 PROTOCOL)
     Route: 065
  16. METHOTREXATE [Suspect]
     Active Substance: METHOTREXATE
     Dosage: UNK (RECEIVED UNDER INDUCTION PHASE OF LAL-PH-2008 PROTOCOL)
     Route: 065
  17. METHOTREXATE [Suspect]
     Active Substance: METHOTREXATE
     Dosage: UNK (RECEIVED UNDER CONSOLIDATION PHASE OF LAL-PH-2022 PROTOCOL)
  18. METHOTREXATE [Suspect]
     Active Substance: METHOTREXATE
     Dosage: UNK (RECEIVED UNDER CONSOLIDATION PHASE OF LAL-PH-2022 PROTOCOL)
  19. METHOTREXATE [Suspect]
     Active Substance: METHOTREXATE
     Dosage: UNK (RECEIVED UNDER CONSOLIDATION PHASE OF LAL-PH-2022 PROTOCOL)
     Route: 065
  20. METHOTREXATE [Suspect]
     Active Substance: METHOTREXATE
     Dosage: UNK (RECEIVED UNDER CONSOLIDATION PHASE OF LAL-PH-2022 PROTOCOL)
     Route: 065
  21. METHOTREXATE [Suspect]
     Active Substance: METHOTREXATE
     Dosage: UNK (RECEIVED AS SHORT COURSE REGIMEN)
  22. METHOTREXATE [Suspect]
     Active Substance: METHOTREXATE
     Dosage: UNK (RECEIVED AS SHORT COURSE REGIMEN)
     Route: 065
  23. METHOTREXATE [Suspect]
     Active Substance: METHOTREXATE
     Dosage: UNK (RECEIVED AS SHORT COURSE REGIMEN)
  24. METHOTREXATE [Suspect]
     Active Substance: METHOTREXATE
     Dosage: UNK (RECEIVED AS SHORT COURSE REGIMEN)
     Route: 065
  25. DASATINIB [Suspect]
     Active Substance: DASATINIB
     Indication: Philadelphia positive acute lymphocytic leukaemia
     Dosage: UNK
  26. DASATINIB [Suspect]
     Active Substance: DASATINIB
     Dosage: UNK
     Route: 065
  27. DASATINIB [Suspect]
     Active Substance: DASATINIB
     Dosage: UNK
     Route: 065
  28. DASATINIB [Suspect]
     Active Substance: DASATINIB
     Dosage: UNK
  29. MYCOPHENOLATE MOFETIL [Suspect]
     Active Substance: MYCOPHENOLATE MOFETIL
     Indication: Philadelphia positive acute lymphocytic leukaemia
     Dosage: UNK (RECEIVED UNDER INDUCTION PHASE OF LAL-PH-2008 PROTOCOL)
  30. MYCOPHENOLATE MOFETIL [Suspect]
     Active Substance: MYCOPHENOLATE MOFETIL
     Dosage: UNK (RECEIVED UNDER INDUCTION PHASE OF LAL-PH-2008 PROTOCOL)
     Route: 065
  31. MYCOPHENOLATE MOFETIL [Suspect]
     Active Substance: MYCOPHENOLATE MOFETIL
     Dosage: UNK (RECEIVED UNDER INDUCTION PHASE OF LAL-PH-2008 PROTOCOL)
     Route: 065
  32. MYCOPHENOLATE MOFETIL [Suspect]
     Active Substance: MYCOPHENOLATE MOFETIL
     Dosage: UNK (RECEIVED UNDER INDUCTION PHASE OF LAL-PH-2008 PROTOCOL)
  33. CYCLOPHOSPHAMIDE [Suspect]
     Active Substance: CYCLOPHOSPHAMIDE
     Indication: Philadelphia positive acute lymphocytic leukaemia
     Dosage: UNK (RECEIVED UNDER INDUCTION PHASE OF LAL-PH-2008 PROTOCOL)
  34. CYCLOPHOSPHAMIDE [Suspect]
     Active Substance: CYCLOPHOSPHAMIDE
     Dosage: UNK (RECEIVED UNDER INDUCTION PHASE OF LAL-PH-2008 PROTOCOL)
     Route: 065
  35. CYCLOPHOSPHAMIDE [Suspect]
     Active Substance: CYCLOPHOSPHAMIDE
     Dosage: UNK (RECEIVED UNDER INDUCTION PHASE OF LAL-PH-2008 PROTOCOL)
     Route: 065
  36. CYCLOPHOSPHAMIDE [Suspect]
     Active Substance: CYCLOPHOSPHAMIDE
     Dosage: UNK (RECEIVED UNDER INDUCTION PHASE OF LAL-PH-2008 PROTOCOL)
  37. CYTARABINE [Concomitant]
     Active Substance: CYTARABINE
     Indication: Philadelphia positive acute lymphocytic leukaemia
     Dosage: UNK (RECEIVED UNDER CONSOLIDATION PHASE OF LAL-PH-2022 PROTOCOL)
  38. CYTARABINE [Concomitant]
     Active Substance: CYTARABINE
     Dosage: UNK (RECEIVED UNDER CONSOLIDATION PHASE OF LAL-PH-2022 PROTOCOL)
     Route: 065
  39. CYTARABINE [Concomitant]
     Active Substance: CYTARABINE
     Dosage: UNK (RECEIVED UNDER CONSOLIDATION PHASE OF LAL-PH-2022 PROTOCOL)
     Route: 065
  40. CYTARABINE [Concomitant]
     Active Substance: CYTARABINE
     Dosage: UNK (RECEIVED UNDER CONSOLIDATION PHASE OF LAL-PH-2022 PROTOCOL)
  41. THIOTEPA [Concomitant]
     Active Substance: THIOTEPA
     Indication: Bone marrow conditioning regimen
     Dosage: UNK
  42. THIOTEPA [Concomitant]
     Active Substance: THIOTEPA
     Dosage: UNK
     Route: 065
  43. THIOTEPA [Concomitant]
     Active Substance: THIOTEPA
     Dosage: UNK
     Route: 065
  44. THIOTEPA [Concomitant]
     Active Substance: THIOTEPA
     Dosage: UNK
  45. BUSULFAN [Concomitant]
     Active Substance: BUSULFAN
     Indication: Bone marrow conditioning regimen
     Dosage: UNK
  46. BUSULFAN [Concomitant]
     Active Substance: BUSULFAN
     Dosage: UNK
     Route: 065
  47. BUSULFAN [Concomitant]
     Active Substance: BUSULFAN
     Dosage: UNK
     Route: 065
  48. BUSULFAN [Concomitant]
     Active Substance: BUSULFAN
     Dosage: UNK
  49. FLUDARABINE [Concomitant]
     Active Substance: FLUDARABINE PHOSPHATE
     Indication: Bone marrow conditioning regimen
     Dosage: UNK
  50. FLUDARABINE [Concomitant]
     Active Substance: FLUDARABINE PHOSPHATE
     Dosage: UNK
     Route: 065
  51. FLUDARABINE [Concomitant]
     Active Substance: FLUDARABINE PHOSPHATE
     Dosage: UNK
     Route: 065
  52. FLUDARABINE [Concomitant]
     Active Substance: FLUDARABINE PHOSPHATE
     Dosage: UNK
  53. BOSUTINIB [Concomitant]
     Active Substance: BOSUTINIB
     Indication: Philadelphia positive acute lymphocytic leukaemia
     Dosage: UNK (RECEIVED UNDER CONSOLIDATION PHASE OF LAL-PH-2022 PROTOCOL)
  54. BOSUTINIB [Concomitant]
     Active Substance: BOSUTINIB
     Dosage: UNK (RECEIVED UNDER CONSOLIDATION PHASE OF LAL-PH-2022 PROTOCOL)
     Route: 065
  55. BOSUTINIB [Concomitant]
     Active Substance: BOSUTINIB
     Dosage: UNK (RECEIVED UNDER CONSOLIDATION PHASE OF LAL-PH-2022 PROTOCOL)
     Route: 065
  56. BOSUTINIB [Concomitant]
     Active Substance: BOSUTINIB
     Dosage: UNK (RECEIVED UNDER CONSOLIDATION PHASE OF LAL-PH-2022 PROTOCOL)
  57. PONATINIB [Concomitant]
     Active Substance: PONATINIB
     Indication: Philadelphia positive acute lymphocytic leukaemia
     Dosage: UNK (RECEIVED UNDER SECOND LINE TREATMENT)
  58. PONATINIB [Concomitant]
     Active Substance: PONATINIB
     Dosage: UNK (RECEIVED UNDER SECOND LINE TREATMENT)
     Route: 065
  59. PONATINIB [Concomitant]
     Active Substance: PONATINIB
     Dosage: UNK (RECEIVED UNDER SECOND LINE TREATMENT)
     Route: 065
  60. PONATINIB [Concomitant]
     Active Substance: PONATINIB
     Dosage: UNK (RECEIVED UNDER SECOND LINE TREATMENT)

REACTIONS (4)
  - Drug ineffective [Unknown]
  - Product prescribing issue [Unknown]
  - Pericardial effusion [Unknown]
  - Gastrointestinal disorder [Unknown]

NARRATIVE: CASE EVENT DATE: 20230101
